FAERS Safety Report 8554871-8 (Version None)
Quarter: 2012Q3

REPORT INFORMATION
  Report Type: 
  Country: None (occurrence: None)
  Receive Date: 20120731
  Receipt Date: 20120723
  Transmission Date: 20120928
  Serious: Yes (Other)
  Sender: FDA-Public Use
  Company Number: JP-VERTEX PHARMACEUTICALS INC.-AE-2012-010913

PATIENT
  Age: 56 Year
  Sex: Female

DRUGS (8)
  1. TELAVIC (TELAPREVIR) [Suspect]
     Route: 048
     Dates: start: 20120322, end: 20120419
  2. RIBAVIRIN [Concomitant]
     Indication: HEPATITIS C
     Route: 048
     Dates: start: 20120126, end: 20120207
  3. RIBAVIRIN [Concomitant]
     Route: 048
     Dates: start: 20120208
  4. ALLEGRA [Concomitant]
     Route: 048
     Dates: start: 20120130
  5. ALLOPURINOL [Concomitant]
     Route: 048
     Dates: start: 20120215, end: 20120417
  6. TELAVIC (TELAPREVIR) [Suspect]
     Indication: HEPATITIS C
     Route: 048
     Dates: start: 20120126, end: 20120321
  7. PEGINTERFERON ALFA-2B [Concomitant]
     Indication: HEPATITIS C
     Route: 058
     Dates: start: 20120126
  8. DOMPERIDONE [Concomitant]
     Route: 048
     Dates: start: 20120130, end: 20120403

REACTIONS (1)
  - WHITE BLOOD CELL COUNT DECREASED [None]
